FAERS Safety Report 16424319 (Version 2)
Quarter: 2025Q3

REPORT INFORMATION
  Report Type: Spontaneous
  Country: EU (occurrence: EU)
  Receive Date: 20190613
  Receipt Date: 20250721
  Transmission Date: 20251021
  Serious: Yes (Other)
  Sender: AUROBINDO
  Company Number: EU-AUROBINDO-AUR-APL-2019-034583

PATIENT
  Age: 23 Year
  Sex: Female

DRUGS (5)
  1. ARIPIPRAZOLE [Suspect]
     Active Substance: ARIPIPRAZOLE
     Indication: Depression
     Dosage: 10 MILLIGRAM, ONCE A DAY
     Route: 065
  2. ARIPIPRAZOLE [Suspect]
     Active Substance: ARIPIPRAZOLE
     Dosage: 20 MILLIGRAM, ONCE A DAY
     Route: 065
  3. ZINC SULFATE [Concomitant]
     Active Substance: ZINC SULFATE
     Indication: Hepato-lenticular degeneration
     Route: 065
  4. PENICILLAMINE [Concomitant]
     Active Substance: PENICILLAMINE
     Indication: Hepato-lenticular degeneration
     Route: 065
  5. OLANZAPINE [Concomitant]
     Active Substance: OLANZAPINE
     Indication: Depression
     Route: 065

REACTIONS (1)
  - Neurological decompensation [Recovered/Resolved]
